FAERS Safety Report 6333396-4 (Version None)
Quarter: 2009Q3

REPORT INFORMATION
  Report Type: 
  Country: None (occurrence: None)
  Receive Date: 20090828
  Receipt Date: 20090820
  Transmission Date: 20100115
  Serious: Yes (Hospitalization)
  Sender: FDA-Public Use
  Company Number: DE-ABBOTT-05P-062-0307363-01

PATIENT
  Sex: Male
  Weight: 64 kg

DRUGS (8)
  1. HUMIRA [Suspect]
     Indication: RHEUMATOID ARTHRITIS
     Route: 058
     Dates: start: 20030925, end: 20041223
  2. METHOTREXATE [Concomitant]
     Indication: RHEUMATOID ARTHRITIS
     Route: 042
     Dates: start: 19981009, end: 19990602
  3. METHOTREXATE [Concomitant]
     Route: 048
     Dates: start: 19990603, end: 20021106
  4. ARAVA [Concomitant]
     Indication: RHEUMATOID ARTHRITIS
     Route: 048
     Dates: start: 20010126, end: 20041201
  5. COMMERCIAL HUMIRA [Concomitant]
     Indication: RHEUMATOID ARTHRITIS
     Route: 058
     Dates: start: 20031002
  6. UNACID PD [Concomitant]
     Indication: ANTIBIOTIC PROPHYLAXIS
     Dates: start: 20041201, end: 20041201
  7. CIPOBAY [Concomitant]
     Indication: DRUG USE FOR UNKNOWN INDICATION
     Dates: start: 20041201, end: 20041201
  8. TDEOS [Concomitant]
     Indication: OSTEOPOROSIS
     Dates: start: 20030101

REACTIONS (1)
  - PYOTHORAX [None]
